FAERS Safety Report 6953927 (Version 6)
Quarter: 2015Q1

REPORT INFORMATION
  Report Type: Report from Study
  Country: DE (occurrence: DE)
  Receive Date: 20090327
  Receipt Date: 20150305
  Transmission Date: 20150721
  Serious: Yes (Death, Hospitalization)
  Sender: FDA-Public Use
  Company Number: PHHO2007DE17111

PATIENT
  Age: 72 Year
  Sex: Female
  Weight: 70 kg

DRUGS (4)
  1. MYFORTIC [Suspect]
     Active Substance: MYCOPHENOLATE SODIUM
     Dosage: NON-STUDY MEDICATION
     Route: 065
  2. EVEROLIMUS [Suspect]
     Active Substance: EVEROLIMUS
     Indication: RENAL TRANSPLANT
     Dosage: 1.5 MG, QD
     Route: 048
     Dates: start: 20070913, end: 20071022
  3. MYFORTIC [Suspect]
     Active Substance: MYCOPHENOLATE SODIUM
     Indication: RENAL TRANSPLANT
     Dosage: STUDY MEDICATION
     Route: 065
     Dates: start: 20070913, end: 20071022
  4. CERTICAN [Suspect]
     Active Substance: EVEROLIMUS
     Indication: PRODUCT USED FOR UNKNOWN INDICATION
     Dosage: NON-STUDY MEDICATION
     Route: 065

REACTIONS (17)
  - Acidosis [Fatal]
  - Wound infection staphylococcal [Unknown]
  - Herpes simplex [Recovering/Resolving]
  - Angina pectoris [Unknown]
  - Infectious colitis [Unknown]
  - Multi-organ failure [Fatal]
  - Respiratory arrest [Not Recovered/Not Resolved]
  - Renal failure [Fatal]
  - Metabolic disorder [Fatal]
  - Cardiac failure [Unknown]
  - Dyspnoea [Unknown]
  - Sepsis [Fatal]
  - Pneumonia [Fatal]
  - Cardiac arrest [Unknown]
  - Coronary artery disease [Recovered/Resolved]
  - Diarrhoea [Recovering/Resolving]
  - Endocarditis [Unknown]

NARRATIVE: CASE EVENT DATE: 20071010
